FAERS Safety Report 5207778-8 (Version None)
Quarter: 2006Q4

REPORT INFORMATION
  Report Type: 
  Country: None (occurrence: None)
  Receive Date: 20061030
  Receipt Date: 20060801
  Transmission Date: 20070319
  Serious: No
  Sender: FDA-Public Use
  Company Number: 255924

PATIENT
  Age: 77 Year
  Sex: Female
  Weight: 79.4 kg

DRUGS (2)
  1. LEVEMIR [Suspect]
     Indication: INSULIN-REQUIRING TYPE II DIABETES MELLITUS
     Dosage: 14 IU, QD, SUBCUTANEOUS
     Route: 058
     Dates: start: 20060718
  2. STARLIX [Concomitant]

REACTIONS (1)
  - INJECTION SITE BRUISING [None]
